FAERS Safety Report 6367835-X (Version None)
Quarter: 2009Q3

REPORT INFORMATION
  Report Type: 
  Country: None (occurrence: None)
  Receive Date: 20090921
  Receipt Date: 20090916
  Transmission Date: 20100115
  Serious: Yes (Death)
  Sender: FDA-Public Use
  Company Number: US-TYCO HEALTHCARE/MALLINCKRODT-T200901728

PATIENT
  Age: 19 Year
  Sex: Female

DRUGS (2)
  1. HYDROMORPHONE [Suspect]
     Indication: ANALGESIA
     Dosage: UNK
     Dates: start: 20030701, end: 20030701
  2. CORTICOSTEROID NOS [Concomitant]
     Indication: SYSTEMIC LUPUS ERYTHEMATOSUS

REACTIONS (1)
  - MENINGOCOCCAL INFECTION [None]
